FAERS Safety Report 25045717 (Version 2)
Quarter: 2025Q2

REPORT INFORMATION
  Report Type: Spontaneous
  Country: SA (occurrence: SA)
  Receive Date: 20250306
  Receipt Date: 20250512
  Transmission Date: 20250716
  Serious: No
  Sender: SANOFI AVENTIS
  Company Number: SA-SA-2025SA065828

PATIENT
  Age: 51 Year
  Sex: Female

DRUGS (1)
  1. DUPIXENT [Suspect]
     Active Substance: DUPILUMAB
     Indication: Dermatitis atopic
     Dosage: 300 MG, QOW
     Route: 058
     Dates: start: 20221201

REACTIONS (2)
  - Eczema [Recovering/Resolving]
  - Eczema eyelids [Recovering/Resolving]

NARRATIVE: CASE EVENT DATE: 20241001
